FAERS Safety Report 25126203 (Version 2)
Quarter: 2025Q2

REPORT INFORMATION
  Report Type: Spontaneous
  Country: ES (occurrence: ES)
  Receive Date: 20250326
  Receipt Date: 20250402
  Transmission Date: 20250717
  Serious: Yes (Other)
  Sender: PFIZER
  Company Number: ES-PFIZER INC-202500050885

PATIENT
  Age: 45 Year
  Sex: Female
  Weight: 57 kg

DRUGS (4)
  1. PRISTIQ EXTENDED-RELEASE [Suspect]
     Active Substance: DESVENLAFAXINE SUCCINATE
     Indication: Depression
     Dosage: 50 MG, 1X/DAY
     Route: 048
     Dates: start: 202410
  2. PRISTIQ EXTENDED-RELEASE [Suspect]
     Active Substance: DESVENLAFAXINE SUCCINATE
     Indication: Anxiety
     Dosage: 100 MG, 1X/DAY
     Route: 048
     Dates: start: 202412
  3. MIRTAZAPINE [Concomitant]
     Active Substance: MIRTAZAPINE
  4. BROMAZEPAM [Concomitant]
     Active Substance: BROMAZEPAM
     Indication: Insomnia

REACTIONS (28)
  - Herpes zoster [Recovered/Resolved]
  - Drug ineffective [Recovered/Resolved]
  - Drug level below therapeutic [Recovered/Resolved]
  - Vision blurred [Recovering/Resolving]
  - Feeling cold [Recovering/Resolving]
  - Disturbance in attention [Recovering/Resolving]
  - Insomnia [Recovered/Resolved]
  - Tachycardia [Recovered/Resolved]
  - Decreased immune responsiveness [Recovered/Resolved]
  - Viral infection [Recovered/Resolved]
  - Norovirus infection [Recovered/Resolved]
  - Hypersensitivity [Recovered/Resolved]
  - Candida infection [Recovered/Resolved]
  - Palpitations [Recovered/Resolved]
  - Libido decreased [Not Recovered/Not Resolved]
  - Somnolence [Unknown]
  - Depressed mood [Unknown]
  - Dizziness [Unknown]
  - Fatigue [Unknown]
  - Myalgia [Unknown]
  - Oedema peripheral [Unknown]
  - Confusional state [Unknown]
  - Impulsive behaviour [Unknown]
  - Headache [Unknown]
  - Influenza like illness [Unknown]
  - Peripheral coldness [Unknown]
  - Impaired work ability [Unknown]
  - Impaired quality of life [Unknown]

NARRATIVE: CASE EVENT DATE: 20250130
